FAERS Safety Report 9464119 (Version 1)
Quarter: 2013Q3

REPORT INFORMATION
  Report Type: Spontaneous
  Country: US (occurrence: US)
  Receive Date: 20130819
  Receipt Date: 20130819
  Transmission Date: 20140515
  Serious: Yes (Life-Threatening, Hospitalization, Other)
  Sender: FDA-Public Use
  Company Number: US-CELGENEUS-163-21880-13081987

PATIENT
  Age: 77 Year
  Sex: Female

DRUGS (5)
  1. REVLIMID [Suspect]
     Indication: PLASMA CELL MYELOMA
     Dosage: 25 MILLIGRAM
     Route: 048
     Dates: start: 201112
  2. REVLIMID [Suspect]
     Dosage: 20MG-10MG
     Route: 048
     Dates: start: 201204
  3. REVLIMID [Suspect]
     Dosage: 25MG-15MG
     Route: 048
     Dates: start: 201303
  4. REVLIMID [Suspect]
     Dosage: 15 MILLIGRAM
     Route: 048
     Dates: start: 20130608, end: 20130716
  5. REVLIMID [Suspect]
     Dosage: 10 MILLIGRAM
     Route: 048
     Dates: start: 201308

REACTIONS (3)
  - Clostridium difficile infection [Recovered/Resolved with Sequelae]
  - White blood cell count decreased [Recovered/Resolved with Sequelae]
  - Fatigue [Not Recovered/Not Resolved]
